FAERS Safety Report 7648227-X (Version None)
Quarter: 2011Q3

REPORT INFORMATION
  Report Type: 
  Country: None (occurrence: None)
  Receive Date: 20110801
  Receipt Date: 20110727
  Transmission Date: 20111222
  Serious: No
  Sender: FDA-Public Use
  Company Number: US-PFIZER INC-2011170975

PATIENT
  Sex: Female

DRUGS (7)
  1. CELEBREX [Suspect]
     Indication: PAIN
     Dosage: 200 MG, 2X/DAY
     Dates: start: 20110726, end: 20110726
  2. KLONOPIN [Concomitant]
     Indication: ANXIETY
     Dosage: UNK
  3. CELEBREX [Suspect]
     Indication: INFLAMMATION
     Dosage: 200 MG, 3X/DAY
     Route: 048
     Dates: start: 20110725
  4. BENICAR [Concomitant]
     Indication: HYPERTENSION
     Dosage: UNK
  5. ZANTAC [Concomitant]
     Indication: GASTROOESOPHAGEAL REFLUX DISEASE
     Dosage: UNK
  6. CLARITIN [Concomitant]
     Indication: HYPERSENSITIVITY
     Dosage: UNK
  7. PREMARIN [Concomitant]
     Indication: HYSTERECTOMY
     Dosage: UNK

REACTIONS (2)
  - RASH [None]
  - OEDEMA PERIPHERAL [None]
